FAERS Safety Report 8466798 (Version 4)
Quarter: 2015Q4

REPORT INFORMATION
  Report Type: Spontaneous
  Country: US (occurrence: US)
  Receive Date: 20120320
  Receipt Date: 20151211
  Transmission Date: 20160305
  Serious: Yes (Other)
  Sender: FDA-Public Use
  Company Number: US-BAYER-2012-024264

PATIENT
  Age: 43 Year
  Sex: Female

DRUGS (1)
  1. MIRENA [Suspect]
     Active Substance: LEVONORGESTREL
     Indication: CONTRACEPTION
     Dosage: 20 MCG/24HR, CONT
     Route: 015
     Dates: start: 2006

REACTIONS (14)
  - Device dislocation [None]
  - Pain [None]
  - Gallbladder operation [None]
  - Appendicectomy [None]
  - Urinary tract infection [None]
  - Cardiac disorder [None]
  - Embedded device [None]
  - Genital haemorrhage [None]
  - Coital bleeding [None]
  - Device use error [None]
  - Gastrooesophageal reflux disease [Not Recovered/Not Resolved]
  - Hypertension [Not Recovered/Not Resolved]
  - Intestinal polypectomy [None]
  - Adverse drug reaction [None]

NARRATIVE: CASE EVENT DATE: 2008
